FAERS Safety Report 18378157 (Version 1)
Quarter: 2020Q4

REPORT INFORMATION
  Report Type: Report from Study
  Country: JP (occurrence: JP)
  Receive Date: 20201013
  Receipt Date: 20201013
  Transmission Date: 20210114
  Serious: Yes (Other)
  Sender: FDA-Public Use
  Company Number: JP-TEVA-2020-JP-1837446

PATIENT
  Age: 44 Year
  Sex: Female

DRUGS (5)
  1. FLUOROURACIL. [Suspect]
     Active Substance: FLUOROURACIL
     Indication: COLORECTAL CANCER STAGE IV
     Dosage: ADMINISTERED OVER CONTINUOUS 46 HOUR ON DAY 1 OF EACH CYCLE
     Route: 041
  2. OXALIPLATIN. [Suspect]
     Active Substance: OXALIPLATIN
     Indication: COLORECTAL CANCER STAGE IV
     Dosage: ADMINISTERED OVER THE COURSE OF 2 HOURS ON DAY 1 OF EACH CYCLE
     Route: 041
  3. BEVACIZUMAB. [Suspect]
     Active Substance: BEVACIZUMAB
     Indication: COLORECTAL CANCER STAGE IV
     Dosage: ADMINISTERED ON DAY 1 OF EACH CYCLE
     Route: 042
  4. L-LEUCOVORIN [Suspect]
     Active Substance: LEUCOVORIN
     Indication: COLORECTAL CANCER STAGE IV
     Dosage: ADMINISTERED OVER THE COURSE OF 2 HOURS ON DAY 1 OF EACH CYCLE
     Route: 041
  5. IRINOTECAN [Suspect]
     Active Substance: IRINOTECAN
     Indication: COLORECTAL CANCER STAGE IV
     Dosage: ADMINISTERED OVER THE COURSE OF 1 HOUR ON DAY 1 OF EACH CYCLE
     Route: 042

REACTIONS (7)
  - Stomatitis [Unknown]
  - Leukopenia [Unknown]
  - Febrile neutropenia [Unknown]
  - Diarrhoea [Unknown]
  - Fatigue [Unknown]
  - Nausea [Unknown]
  - Neuropathy peripheral [Unknown]
